FAERS Safety Report 8926680 (Version 7)
Quarter: 2021Q1

REPORT INFORMATION
  Report Type: Spontaneous
  Country: US (occurrence: US)
  Receive Date: 20121127
  Receipt Date: 20210115
  Transmission Date: 20210420
  Serious: No
  Sender: FDA-Public Use
  Company Number: US-PFIZER INC-2012296906

PATIENT
  Age: 62 Year
  Sex: Female
  Weight: 43.99 kg

DRUGS (10)
  1. MAGNESIUM [Concomitant]
     Active Substance: MAGNESIUM
     Dosage: 400 MG, UNK
  2. LYRICA [Suspect]
     Active Substance: PREGABALIN
     Indication: NERVE INJURY
     Dosage: 50MG TO 75MG 2?3 TIMES DAY, AS NEEDED
  3. KLONOPIN [Concomitant]
     Active Substance: CLONAZEPAM
     Indication: VULVOVAGINAL PAIN
  4. FLEXERIL [Concomitant]
     Active Substance: CYCLOBENZAPRINE HYDROCHLORIDE
     Dosage: UNK
  5. MIRALAX [Concomitant]
     Active Substance: POLYETHYLENE GLYCOL 3350
     Indication: LAXATIVE SUPPORTIVE CARE
     Dosage: UNK, 2X/DAY
  6. KLONOPIN [Concomitant]
     Active Substance: CLONAZEPAM
     Indication: ANXIETY
     Dosage: 1 MG, 3X/DAY
  7. SENNA [Concomitant]
     Active Substance: SENNA LEAF\SENNOSIDES\SENNOSIDES A AND B
     Dosage: 8.5 MG, UNK
  8. PROBIOTIC 10 [Concomitant]
     Active Substance: DIETARY SUPPLEMENT\PROBIOTICS
     Dosage: 2 DF, 1X/DAY
  9. LYRICA [Suspect]
     Active Substance: PREGABALIN
     Dosage: 50MG TO 75MG 2?3 TIMES DAY, AS NEEDED
  10. LYRICA [Suspect]
     Active Substance: PREGABALIN
     Indication: VULVOVAGINAL PAIN
     Dosage: 50MG TO 75MG 2?3 TIMES DAY, AS NEEDED

REACTIONS (7)
  - Somnolence [Recovering/Resolving]
  - Off label use [Unknown]
  - Weight increased [Recovering/Resolving]
  - Memory impairment [Not Recovered/Not Resolved]
  - Nasopharyngitis [Unknown]
  - Lethargy [Not Recovered/Not Resolved]
  - Sinusitis [Unknown]
